FAERS Safety Report 4693853-3 (Version None)
Quarter: 2005Q2

REPORT INFORMATION
  Report Type: 
  Country: None (occurrence: None)
  Receive Date: 20050615
  Receipt Date: 20050610
  Transmission Date: 20051028
  Serious: Yes (Disabling)
  Sender: FDA-Public Use
  Company Number: S05-USA-00801-02

PATIENT

DRUGS (3)
  1. CERVIDIL [Suspect]
     Indication: LABOUR INDUCTION
     Dates: start: 19980111, end: 19980111
  2. PITOCIN [Suspect]
     Indication: LABOUR INDUCTION
     Dates: start: 19980111, end: 19980111
  3. EPIDURAL [Concomitant]

REACTIONS (3)
  - CEREBRAL PALSY [None]
  - CONGENITAL BRAIN DAMAGE [None]
  - DRUG EXPOSURE DURING PREGNANCY [None]
